FAERS Safety Report 6444398-1 (Version None)
Quarter: 2009Q4

REPORT INFORMATION
  Report Type: 
  Country: None (occurrence: None)
  Receive Date: 20091110
  Receipt Date: 20091009
  Transmission Date: 20100525
  Serious: Yes (Other)
  Sender: FDA-Public Use
  Company Number: 1000007569

PATIENT
  Age: 37 Year
  Sex: Female
  Weight: 64.4108 kg

DRUGS (6)
  1. SAVELLA [Suspect]
     Indication: FIBROMYALGIA
     Dosage: 100 MG (50 MG, 2 IN 1 D), ORAL
     Route: 048
     Dates: start: 20090612, end: 20090618
  2. METHADONE (10 MILLIGRAM) [Concomitant]
  3. TRAZODONE HCL [Concomitant]
  4. NEURONTIN [Concomitant]
  5. KLONOPIN [Concomitant]
  6. LISINOPRIL [Concomitant]

REACTIONS (1)
  - SUICIDAL IDEATION [None]
